FAERS Safety Report 9383029 (Version 1)
Quarter: 2013Q3

REPORT INFORMATION
  Report Type: Spontaneous
  Country: US (occurrence: US)
  Receive Date: 20130704
  Receipt Date: 20130704
  Transmission Date: 20140515
  Serious: No
  Sender: FDA-Public Use
  Company Number: US-US-EMD SERONO, INC.-7221212

PATIENT
  Sex: Male
  Weight: 86 kg

DRUGS (1)
  1. REBIF [Suspect]
     Indication: MULTIPLE SCLEROSIS
     Route: 058

REACTIONS (5)
  - Mood altered [Unknown]
  - Memory impairment [Unknown]
  - Dyscalculia [Unknown]
  - Depression [Unknown]
  - Injection site reaction [Unknown]
